FAERS Safety Report 8249230-1 (Version None)
Quarter: 2012Q1

REPORT INFORMATION
  Report Type: 
  Country: None (occurrence: None)
  Receive Date: 20120315
  Receipt Date: 20120307
  Transmission Date: 20120608
  Serious: Yes (Hospitalization)
  Sender: FDA-Public Use
  Company Number: 2012031131

PATIENT
  Age: 53 Year
  Sex: Female
  Weight: 83.4619 kg

DRUGS (22)
  1. CYMBALATA (DULOXETINE HYDROCHLORIDE) [Concomitant]
  2. TEMAZEPAM [Concomitant]
  3. ULTRAM [Concomitant]
  4. DOXYCYCLINE [Concomitant]
  5. ALBUTEROL [Concomitant]
  6. HIZENTRA [Suspect]
     Indication: HYPOGLOBULINAEMIA
     Dosage: 3 G 1X/WEEK, 1 GM (5 ML) ON 1 SITE OVER 1 HOUR AND 15 MINUTES SUBCUTANEOUS
     Route: 058
     Dates: start: 20120127, end: 20120127
  7. LAMICTAL XR (LAMOTRIGINE) [Concomitant]
  8. VITAMIN D [Concomitant]
  9. ISOSORBIDE DINITRATE [Concomitant]
  10. LEVAQUIN [Concomitant]
  11. HIZENTRA [Suspect]
     Indication: HYPOGLOBULINAEMIA
     Dates: start: 20120106
  12. TORSEMIDE [Concomitant]
  13. VITAMIN B 12 INJECTION (CYANOCOBALAMIN) [Concomitant]
  14. SINGULAIR [Concomitant]
  15. VALIUM [Concomitant]
  16. HIZENTRA [Suspect]
     Indication: HYPOGLOBULINAEMIA
     Dosage: 3 G 1X/WEEK, 1 SITE OVER 1 HOUR 15 MINUTES SUBCUTANEOUS
     Route: 058
     Dates: start: 20120109, end: 20120109
  17. HIZENTRA [Suspect]
     Indication: HYPOGLOBULINAEMIA
     Dosage: 3 G 1X/WEEK, 1 GM (5 ML) ON 1 SITS OVER 1 HOURS 15 MINUTES SUBCUTANEOUS
     Route: 058
     Dates: start: 20120206, end: 20120206
  18. LOVAZA (FISH OIL) [Concomitant]
  19. BYSTOLIC [Concomitant]
  20. HIZENTRA [Suspect]
     Indication: HYPOGLOBULINAEMIA
     Dosage: 3 G 1X/WEEK, 1 GM (5 ML) ON 1 SITE SUBCUTANEOUS
     Route: 058
     Dates: start: 20120306, end: 20120306
  21. IPRAT-ALBUT (COMBIVENT) [Concomitant]
  22. NEXIUM [Concomitant]

REACTIONS (7)
  - INFUSION SITE SWELLING [None]
  - HOT FLUSH [None]
  - MYOCARDIAL INFARCTION [None]
  - INFUSION SITE ERYTHEMA [None]
  - CHILLS [None]
  - INFUSION SITE PAIN [None]
  - DIZZINESS [None]
